FAERS Safety Report 16100625 (Version 3)
Quarter: 2019Q2

REPORT INFORMATION
  Report Type: Report from Study
  Country: US (occurrence: US)
  Receive Date: 20190321
  Receipt Date: 20190529
  Transmission Date: 20190711
  Serious: Yes (Other)
  Sender: FDA-Public Use
  Company Number: US-REGENERON PHARMACEUTICALS, INC.-2019-22458

PATIENT

DRUGS (2)
  1. EYLEA [Suspect]
     Active Substance: AFLIBERCEPT
     Indication: MACULAR DEGENERATION
     Dosage: UNK, Q6W, LEFT EYE
     Route: 031
     Dates: start: 20190304
  2. EYLEA [Suspect]
     Active Substance: AFLIBERCEPT
     Indication: HISTOPLASMOSIS
     Dosage: UNK, Q6W, LEFT EYE
     Route: 031
     Dates: start: 2016, end: 201810

REACTIONS (3)
  - Retinal scar [Unknown]
  - Eye haemorrhage [Unknown]
  - Off label use [Unknown]
